FAERS Safety Report 23841670 (Version 1)
Quarter: 2024Q2

REPORT INFORMATION
  Report Type: Spontaneous
  Country: CN (occurrence: CN)
  Receive Date: 20240510
  Receipt Date: 20240510
  Transmission Date: 20240716
  Serious: Yes (Disabling)
  Sender: FDA-Public Use
  Company Number: CN-ROCHE-3559001

PATIENT
  Age: 50 Year
  Sex: Male
  Weight: 50 kg

DRUGS (6)
  1. XELODA [Suspect]
     Active Substance: CAPECITABINE
     Indication: Rectal cancer
     Dosage: FREQ: BID. CAPECITABINE TABLETS 1G BID PO D1-D14. APPROVAL NO. GYZZ H20073024
     Route: 048
     Dates: start: 20240406, end: 20240410
  2. BEVACIZUMAB [Suspect]
     Active Substance: BEVACIZUMAB
     Indication: Rectal cancer
     Dosage: APPROVAL NO. GYZZ S20210020
     Route: 065
     Dates: start: 20240406, end: 20240406
  3. BEVACIZUMAB [Suspect]
     Active Substance: BEVACIZUMAB
     Dosage: BEVACIZUMAB 250MG
     Route: 065
     Dates: start: 20240406, end: 20240406
  4. OXALIPLATIN [Suspect]
     Active Substance: OXALIPLATIN
     Indication: Rectal cancer
     Dosage: ROA: IV DRIP. APPROVAL NO. GYZZ H20213060
     Route: 041
     Dates: start: 20240406, end: 20240406
  5. SODIUM CHLORIDE [Concomitant]
     Active Substance: SODIUM CHLORIDE
     Dosage: MEDICATED SOLVENTS. ROA: IV DRIP. APPROVAL NO. GYZZ H20003204
     Route: 041
     Dates: start: 20240406, end: 20240406
  6. DEXTROSE [Concomitant]
     Active Substance: DEXTROSE\DEXTROSE MONOHYDRATE
     Dosage: ROA: IV DRIP. MEDICATED SOLVENTS. 500 ML [1 TIME EVERY 11 DAYS. APPROVAL NO. GYZZ H19983123
     Route: 041
     Dates: start: 20240406, end: 20240406

REACTIONS (1)
  - Myelosuppression [Recovering/Resolving]

NARRATIVE: CASE EVENT DATE: 20240408
